FAERS Safety Report 13579791 (Version 3)
Quarter: 2018Q3

REPORT INFORMATION
  Report Type: Report from Study
  Country: US (occurrence: US)
  Receive Date: 20170525
  Receipt Date: 20180731
  Transmission Date: 20181010
  Serious: Yes (Other)
  Sender: FDA-Public Use
  Company Number: US-ROCHE-1937307

PATIENT
  Sex: Female

DRUGS (2)
  1. ESBRIET [Suspect]
     Active Substance: PIRFENIDONE
     Indication: IDIOPATHIC PULMONARY FIBROSIS
     Dosage: ONGOING: YES, (3) 267 MG
     Route: 048
     Dates: start: 20160201
  2. ESBRIET [Suspect]
     Active Substance: PIRFENIDONE
     Route: 048
     Dates: start: 201602

REACTIONS (11)
  - Pyrexia [Not Recovered/Not Resolved]
  - Dyspepsia [Unknown]
  - Macular degeneration [Not Recovered/Not Resolved]
  - Fatigue [Recovering/Resolving]
  - Asthma [Not Recovered/Not Resolved]
  - Chills [Not Recovered/Not Resolved]
  - Head discomfort [Recovered/Resolved]
  - Dyspnoea [Not Recovered/Not Resolved]
  - Gastrooesophageal reflux disease [Not Recovered/Not Resolved]
  - Pneumonia [Not Recovered/Not Resolved]
  - Malaise [Not Recovered/Not Resolved]
